FAERS Safety Report 16794631 (Version 3)
Quarter: 2019Q4

REPORT INFORMATION
  Report Type: Spontaneous
  Country: FR (occurrence: FR)
  Receive Date: 20190911
  Receipt Date: 20191017
  Transmission Date: 20200122
  Serious: Yes (Hospitalization, Other)
  Sender: FDA-Public Use
  Company Number: FR-BRISTOL-MYERS SQUIBB COMPANY-BMS-2019-086141

PATIENT
  Age: 58 Year
  Sex: Female
  Weight: 68.5 kg

DRUGS (2)
  1. FASTURTEC [Suspect]
     Active Substance: RASBURICASE
     Indication: TUMOUR LYSIS SYNDROME
     Dosage: 7.5 MILLIGRAM
     Route: 041
     Dates: start: 20190425, end: 20190430
  2. HYDREA [Suspect]
     Active Substance: HYDROXYUREA
     Indication: ACUTE MYELOID LEUKAEMIA
     Dosage: 6 GRAM, QD
     Route: 048
     Dates: start: 20190424, end: 20190502

REACTIONS (4)
  - Off label use [Unknown]
  - Disseminated intravascular coagulation [Recovered/Resolved]
  - Intentional product use issue [Unknown]
  - Prothrombin time ratio decreased [Recovered/Resolved]

NARRATIVE: CASE EVENT DATE: 20190427
